FAERS Safety Report 4770737-3 (Version None)
Quarter: 2005Q3

REPORT INFORMATION
  Report Type: 
  Country: None (occurrence: None)
  Receive Date: 20050915
  Receipt Date: 20050908
  Transmission Date: 20060218
  Serious: Yes (Disabling)
  Sender: FDA-Public Use
  Company Number: US-MERCK-0509USA01067

PATIENT
  Age: 69 Year
  Sex: Female

DRUGS (2)
  1. VIOXX [Suspect]
     Route: 048
     Dates: start: 20020101, end: 20030101
  2. BEXTRA [Suspect]
     Route: 065
     Dates: start: 20030101, end: 20030101

REACTIONS (1)
  - CEREBROVASCULAR ACCIDENT [None]
